FAERS Safety Report 5637945-0 (Version None)
Quarter: 2008Q1

REPORT INFORMATION
  Report Type: 
  Country: None (occurrence: None)
  Receive Date: 20080222
  Receipt Date: 20080222
  Transmission Date: 20080703
  Serious: Yes (Other)
  Sender: FDA-Public Use
  Company Number: None

PATIENT
  Sex: Female
  Weight: 73.4827 kg

DRUGS (2)
  1. ZETIA [Suspect]
     Indication: BLOOD CHOLESTEROL INCREASED
     Dosage: 1 TABLET 10MG 1 PER DAY DAILY
     Dates: start: 20061201, end: 20080101
  2. TOPROL-XL [Suspect]
     Indication: HYPERTENSION
     Dosage: 1 TABLET 50MG 1 PER DAY DAILY
     Dates: start: 20010801, end: 20080101

REACTIONS (19)
  - ANGER [None]
  - ASTHENIA [None]
  - ASTHMA [None]
  - BLOOD CHOLESTEROL INCREASED [None]
  - DECREASED APPETITE [None]
  - DIZZINESS [None]
  - DRUG INEFFECTIVE [None]
  - ECONOMIC PROBLEM [None]
  - FATIGUE [None]
  - GAIT DISTURBANCE [None]
  - INJURY [None]
  - JOINT SWELLING [None]
  - MALAISE [None]
  - MIDDLE INSOMNIA [None]
  - MUSCLE SPASMS [None]
  - NO THERAPEUTIC RESPONSE [None]
  - OEDEMA PERIPHERAL [None]
  - PHARMACEUTICAL PRODUCT COMPLAINT [None]
  - SCREAMING [None]
